FAERS Safety Report 19091465 (Version 1)
Quarter: 2021Q2

REPORT INFORMATION
  Report Type: Spontaneous
  Country: JP (occurrence: JP)
  Receive Date: 20210405
  Receipt Date: 20210405
  Transmission Date: 20210717
  Serious: Yes (Hospitalization)
  Sender: FDA-Public Use
  Company Number: NVSJ2021JP005035

PATIENT
  Sex: Female

DRUGS (3)
  1. LOXONIN [Concomitant]
     Active Substance: LOXOPROFEN SODIUM
     Indication: MUSCULOSKELETAL PAIN
     Dosage: UNK
     Route: 065
  2. NEUROTROPIN [Concomitant]
     Active Substance: NEUROTROPIN
     Indication: MUSCULOSKELETAL PAIN
     Dosage: UNK
     Route: 065
  3. VOLTAREN [Suspect]
     Active Substance: DICLOFENAC SODIUM
     Indication: MUSCULOSKELETAL PAIN
     Dosage: UNK
     Route: 065

REACTIONS (6)
  - Septic arthritis staphylococcal [Unknown]
  - Pain [Unknown]
  - Osteitis condensans [Unknown]
  - Pyrexia [Unknown]
  - Maternal exposure during breast feeding [Unknown]
  - Drug ineffective [Unknown]
